FAERS Safety Report 20536243 (Version 3)
Quarter: 2022Q2

REPORT INFORMATION
  Report Type: Other
  Country: LB (occurrence: LB)
  Receive Date: 20220302
  Receipt Date: 20220413
  Transmission Date: 20220721
  Serious: Yes (Other)
  Sender: FDA-Public Use
  Company Number: LB-002147023-NVSC2022LB039194

PATIENT
  Age: 76 Year
  Sex: Male
  Weight: 68 kg

DRUGS (3)
  1. LUCENTIS [Suspect]
     Active Substance: RANIBIZUMAB
     Indication: Diabetic retinal oedema
     Dosage: UNK (10 MG/ML, LEFT EYE)
     Route: 031
     Dates: start: 20200201, end: 20201020
  2. INSULIN NOS [Concomitant]
     Active Substance: INSULIN NOS
     Indication: Product used for unknown indication
  3. BISOPROLOL FUMARATE [Concomitant]
     Active Substance: BISOPROLOL FUMARATE

REACTIONS (6)
  - Coronary artery stenosis [Not Recovered/Not Resolved]
  - Cardiac failure [Unknown]
  - Cataract [Recovered/Resolved]
  - Coronary artery disease [Unknown]
  - Fatigue [Not Recovered/Not Resolved]
  - Dizziness [Not Recovered/Not Resolved]

NARRATIVE: CASE EVENT DATE: 20220207
